FAERS Safety Report 20529267 (Version 2)
Quarter: 2022Q2

REPORT INFORMATION
  Report Type: Spontaneous
  Country: US (occurrence: US)
  Receive Date: 20220228
  Receipt Date: 20220510
  Transmission Date: 20220720
  Serious: No
  Sender: FDA-Public Use
  Company Number: US-BoehringerIngelheim-2022-BI-156580

PATIENT
  Sex: Female

DRUGS (1)
  1. SPIRIVA RESPIMAT [Suspect]
     Active Substance: TIOTROPIUM BROMIDE
     Indication: Chronic obstructive pulmonary disease
     Dosage: 2 PUFFS (4ML, 2.5MCG)?60ACT INHAL
     Dates: start: 202110

REACTIONS (3)
  - Pulmonary pain [Not Recovered/Not Resolved]
  - Lung disorder [Not Recovered/Not Resolved]
  - Device malfunction [Unknown]

NARRATIVE: CASE EVENT DATE: 20220228
